FAERS Safety Report 6345180-6 (Version None)
Quarter: 2009Q3

REPORT INFORMATION
  Report Type: 
  Country: None (occurrence: None)
  Receive Date: 20090909
  Receipt Date: 20090831
  Transmission Date: 20100115
  Serious: Yes (Other)
  Sender: FDA-Public Use
  Company Number: FR-JNJFOC-20090809445

PATIENT
  Sex: Female

DRUGS (12)
  1. HALDOL [Suspect]
     Indication: DRUG USE FOR UNKNOWN INDICATION
     Route: 048
  2. ANAFRANIL [Suspect]
     Indication: DRUG USE FOR UNKNOWN INDICATION
     Dosage: 25MG/2ML
     Route: 030
  3. ANAFRANIL [Suspect]
     Route: 048
  4. VALIUM [Suspect]
     Route: 048
  5. VALIUM [Suspect]
     Indication: DRUG USE FOR UNKNOWN INDICATION
     Route: 048
  6. NOZINAN [Suspect]
     Indication: DRUG USE FOR UNKNOWN INDICATION
     Route: 065
  7. LEPTICUR [Concomitant]
     Route: 048
  8. ELISOR [Concomitant]
     Route: 048
  9. PULMICORT-100 [Concomitant]
     Route: 055
  10. BRICANYL [Concomitant]
     Route: 055
  11. ATROVENT [Concomitant]
     Route: 055
  12. LEVOTHYROXINE SODIUM [Concomitant]

REACTIONS (3)
  - FALL [None]
  - LOSS OF CONSCIOUSNESS [None]
  - MALAISE [None]
